FAERS Safety Report 6967209-4 (Version None)
Quarter: 2010Q3

REPORT INFORMATION
  Report Type: 
  Country: None (occurrence: None)
  Receive Date: 20100907
  Receipt Date: 20100825
  Transmission Date: 20110219
  Serious: No
  Sender: FDA-Public Use
  Company Number: US-JNJFOC-20100808851

PATIENT
  Sex: Female
  Weight: 104.33 kg

DRUGS (4)
  1. FENTANYL-100 [Suspect]
     Indication: SPINAL COLUMN STENOSIS
     Route: 062
  2. FENTANYL CITRATE [Suspect]
     Indication: SPINAL COLUMN STENOSIS
     Dosage: NDC#: 0781-7242-55
     Route: 062
  3. PERCOCET [Concomitant]
     Indication: PAIN
     Dosage: 5/325 MG TABLETS DAILY
     Route: 048
  4. UNKNOWN MULTIPLE MEDICATION [Concomitant]
     Route: 065

REACTIONS (3)
  - MYALGIA [None]
  - PRODUCT ADHESION ISSUE [None]
  - WRONG TECHNIQUE IN DRUG USAGE PROCESS [None]
